FAERS Safety Report 6091463-7 (Version None)
Quarter: 2009Q1

REPORT INFORMATION
  Report Type: 
  Country: None (occurrence: None)
  Receive Date: 20090219
  Receipt Date: 20090219
  Transmission Date: 20090719
  Serious: Yes (Hospitalization)
  Sender: FDA-Public Use
  Company Number: None

PATIENT
  Sex: Female
  Weight: 94.8018 kg

DRUGS (2)
  1. PACLITAXEL [Suspect]
     Indication: BREAST CANCER
     Dosage: 80MG/M2 IV D1, 8, +15
     Route: 042
     Dates: start: 20081124
  2. RAD001 [Suspect]
     Indication: BREAST CANCER
     Dosage: 30 MG PO D1, 8, 15, + 22
     Route: 048
     Dates: start: 20081124

REACTIONS (3)
  - CATHETER SITE HAEMORRHAGE [None]
  - CELLULITIS [None]
  - WOUND DEHISCENCE [None]
